FAERS Safety Report 10450979 (Version 1)
Quarter: 2014Q3

REPORT INFORMATION
  Report Type: Spontaneous
  Country: FR (occurrence: FR)
  Receive Date: 20140912
  Receipt Date: 20140912
  Transmission Date: 20150326
  Serious: Yes (Hospitalization)
  Sender: FDA-Public Use
  Company Number: FR-PFIZER INC-2014249455

PATIENT
  Age: 38 Year
  Sex: Female

DRUGS (13)
  1. TAZOCILLINE [Suspect]
     Active Substance: PIPERACILLIN SODIUM\TAZOBACTAM SODIUM
     Dosage: UNK
     Dates: start: 20140810
  2. ETHAMBUTOL [Concomitant]
     Active Substance: ETHAMBUTOL HYDROCHLORIDE
     Dosage: 1000 MG, DAILY
     Dates: start: 20140725, end: 20140728
  3. CYMEVAN [Suspect]
     Active Substance: GANCICLOVIR
     Indication: CYTOMEGALOVIRUS COLITIS
     Dosage: 500 MG, DAILY
     Dates: start: 20140805
  4. TAHOR [Concomitant]
     Active Substance: ATORVASTATIN CALCIUM
     Dosage: 10 MG, DAILY
     Dates: start: 201306
  5. SOLUPRED [Concomitant]
     Active Substance: PREDNISOLONE
     Dosage: UNK
     Dates: start: 201010
  6. KALEORID [Concomitant]
     Active Substance: POTASSIUM CHLORIDE
     Dosage: 2 TO 3 DF DAILY
     Dates: start: 201010
  7. LASILIX [Concomitant]
     Active Substance: FUROSEMIDE
     Dosage: 500 MG, 2X/DAY
     Dates: start: 201210
  8. TARDYFERON [Concomitant]
     Active Substance: FERROUS SULFATE\FOLIC ACID
     Dosage: 80 MG, UNK
     Dates: start: 201406
  9. ETHAMBUTOL [Concomitant]
     Active Substance: ETHAMBUTOL HYDROCHLORIDE
     Dosage: 1000 MG, DAILY
     Dates: start: 20140731, end: 20140806
  10. RIFATER [Suspect]
     Active Substance: ISONIAZID\PYRAZINAMIDE\RIFAMPIN
     Dosage: UNK
     Dates: start: 20140725, end: 20140728
  11. ZYVOXID [Suspect]
     Active Substance: LINEZOLID
     Indication: PHLEBITIS
     Dosage: UNK
     Dates: start: 20140809
  12. INEXIUM [Concomitant]
     Active Substance: ESOMEPRAZOLE
     Dosage: 20 MG, DAILY
     Dates: start: 201010
  13. CACIT D3 [Concomitant]
     Active Substance: CALCIUM\CHOLECALCIFEROL
     Dosage: 1 DF, 1X/DAY
     Dates: start: 201210

REACTIONS (2)
  - Neutropenia [Recovered/Resolved]
  - Pancreatitis [Unknown]

NARRATIVE: CASE EVENT DATE: 20140812
